FAERS Safety Report 4822678-0 (Version None)
Quarter: 2005Q4

REPORT INFORMATION
  Report Type: 
  Country: None (occurrence: None)
  Receive Date: 20051108
  Receipt Date: 20051018
  Transmission Date: 20060501
  Serious: Yes (Death)
  Sender: FDA-Public Use
  Company Number: JP-GLAXOSMITHKLINE-B0397584A

PATIENT
  Age: 47 Year
  Sex: Male

DRUGS (4)
  1. HEPSERA [Suspect]
     Indication: HEPATITIS B
     Dosage: 10MG PER DAY
     Route: 048
     Dates: start: 20031027, end: 20040126
  2. ZEFIX [Suspect]
     Route: 048
     Dates: end: 20040126
  3. INTERFERON [Suspect]
  4. STEROIDS [Suspect]
     Route: 065

REACTIONS (2)
  - HEPATITIS [None]
  - HEPATITIS FULMINANT [None]
